FAERS Safety Report 22952044 (Version 3)
Quarter: 2023Q4

REPORT INFORMATION
  Report Type: Spontaneous
  Country: US (occurrence: US)
  Receive Date: 20230918
  Receipt Date: 20231222
  Transmission Date: 20240109
  Serious: Yes (Hospitalization)
  Sender: FDA-Public Use
  Company Number: US-RECORDATI RARE DISEASE INC.-2023006331

PATIENT

DRUGS (6)
  1. CARBAGLU [Suspect]
     Active Substance: CARGLUMIC ACID
     Indication: Methylmalonic acidaemia
     Dosage: DISSOLVE 200 MG TABLET IN 2.5 ML OF WATER INGEST VIA GASTRIC TUBE THREE TIMES A DAY
     Dates: start: 2022
  2. CARBAGLU [Suspect]
     Active Substance: CARGLUMIC ACID
     Dosage: 200 MILLIGRAM, QID
  3. OMEPRAZOLE [Concomitant]
     Active Substance: OMEPRAZOLE
     Indication: Product used for unknown indication
     Dosage: 10 MG
     Dates: start: 20221220
  4. CYANOCOBALAMIN [Concomitant]
     Active Substance: CYANOCOBALAMIN
     Indication: Product used for unknown indication
     Dosage: UNK
     Dates: start: 20221220
  5. CITRIC ACID [Concomitant]
     Active Substance: CITRIC ACID MONOHYDRATE
     Indication: Product used for unknown indication
     Dosage: UNK
     Dates: start: 20221220
  6. L CARNITINE [LEVOCARNITINE] [Concomitant]
     Indication: Product used for unknown indication
     Dosage: UNK
     Dates: start: 20221220

REACTIONS (1)
  - Hospitalisation [Unknown]
